FAERS Safety Report 7669433-4 (Version None)
Quarter: 2011Q3

REPORT INFORMATION
  Report Type: 
  Country: None (occurrence: None)
  Receive Date: 20110808
  Receipt Date: 20110804
  Transmission Date: 20111222
  Serious: Yes (Hospitalization)
  Sender: FDA-Public Use
  Company Number: EG-JNJFOC-20110410040

PATIENT

DRUGS (1)
  1. OXYBUTYNIN [Suspect]
     Indication: HYPOSPADIAS
     Route: 065

REACTIONS (1)
  - INFECTION [None]
